FAERS Safety Report 21155826 (Version 1)
Quarter: 2022Q3

REPORT INFORMATION
  Report Type: Spontaneous
  Country: AR (occurrence: AR)
  Receive Date: 20220801
  Receipt Date: 20220801
  Transmission Date: 20221026
  Serious: Yes (Death, Other)
  Sender: FDA-Public Use
  Company Number: AR-BAYER-2022P009243

PATIENT
  Age: 76 Year
  Sex: Female

DRUGS (1)
  1. ULTRAVIST [Suspect]
     Active Substance: IOPROMIDE
     Indication: Computerised tomogram abdomen
     Dosage: UNK

REACTIONS (5)
  - Cardio-respiratory arrest [Fatal]
  - Respiratory failure [Fatal]
  - Hypokinesia [Fatal]
  - Bradypnoea [Fatal]
  - Stupor [Fatal]
